FAERS Safety Report 23619906 (Version 1)
Quarter: 2024Q1

REPORT INFORMATION
  Report Type: Report from Study
  Country: DE (occurrence: DE)
  Receive Date: 20240312
  Receipt Date: 20240312
  Transmission Date: 20240409
  Serious: Yes (Other)
  Sender: FDA-Public Use
  Company Number: DE-EMA-DD-20240205-7482715-121941

PATIENT
  Age: 43 Year
  Sex: Male

DRUGS (2)
  1. FILGRASTIM [Suspect]
     Active Substance: FILGRASTIM
     Indication: Haematopoietic stem cell mobilisation
     Dosage: 2700 UG, TOTAL
     Route: 058
     Dates: start: 20121027
  2. FILGRASTIM [Suspect]
     Active Substance: FILGRASTIM
     Dosage: 2700 UG, TOTAL
     Route: 058
     Dates: start: 20121031

REACTIONS (9)
  - Osteochondrosis [Recovering/Resolving]
  - Chills [Recovered/Resolved]
  - Blood potassium decreased [Recovered/Resolved]
  - Urethritis [Recovered/Resolved]
  - Fatigue [Recovered/Resolved]
  - Fatigue [Recovered/Resolved]
  - Bone pain [Recovered/Resolved]
  - Arthralgia [Recovering/Resolving]
  - Bone pain [Recovered/Resolved]

NARRATIVE: CASE EVENT DATE: 20121031
